FAERS Safety Report 8458077-2 (Version None)
Quarter: 2012Q2

REPORT INFORMATION
  Report Type: 
  Country: None (occurrence: None)
  Receive Date: 20120622
  Receipt Date: 20120612
  Transmission Date: 20120825
  Serious: Yes (Other)
  Sender: FDA-Public Use
  Company Number: US-JNJFOC-20120606221

PATIENT
  Sex: Male
  Weight: 111.13 kg

DRUGS (2)
  1. SIMPONI [Suspect]
     Indication: RHEUMATOID ARTHRITIS
     Route: 058
     Dates: start: 20070101
  2. HERBAL MEDICATION [Concomitant]
     Dates: start: 20110901

REACTIONS (3)
  - SYNOVIAL FLUID ANALYSIS ABNORMAL [None]
  - MOVEMENT DISORDER [None]
  - DRUG INEFFECTIVE [None]
